FAERS Safety Report 17208830 (Version 1)
Quarter: 2019Q4

REPORT INFORMATION
  Report Type: Spontaneous
  Country: US (occurrence: US)
  Receive Date: 20191227
  Receipt Date: 20191227
  Transmission Date: 20200122
  Serious: Yes (Other)
  Sender: FDA-Public Use
  Company Number: US-JNJFOC-20191241228

PATIENT
  Age: 57 Year
  Sex: Male
  Weight: 67.19 kg

DRUGS (5)
  1. REMICADE [Suspect]
     Active Substance: INFLIXIMAB
     Route: 042
     Dates: start: 201809, end: 2018
  2. REMICADE [Suspect]
     Active Substance: INFLIXIMAB
     Route: 042
     Dates: start: 201912
  3. LISINOPRIL. [Concomitant]
     Active Substance: LISINOPRIL
     Indication: HYPERTENSION
     Route: 048
  4. REMICADE [Suspect]
     Active Substance: INFLIXIMAB
     Indication: RHEUMATOID ARTHRITIS
     Route: 042
     Dates: start: 2001
  5. REMICADE [Suspect]
     Active Substance: INFLIXIMAB
     Dosage: 6 TO 8 WEEKS
     Route: 042
     Dates: start: 201908, end: 2019

REACTIONS (9)
  - Swelling [Recovered/Resolved]
  - Pruritus [Not Recovered/Not Resolved]
  - Fall [Recovered/Resolved]
  - Staphylococcal infection [Recovered/Resolved]
  - Sinusitis [Recovered/Resolved]
  - Chills [Not Recovered/Not Resolved]
  - Pain [Not Recovered/Not Resolved]
  - Anxiety [Not Recovered/Not Resolved]
  - Infusion related reaction [Unknown]

NARRATIVE: CASE EVENT DATE: 2018
